FAERS Safety Report 5444198-5 (Version None)
Quarter: 2007Q3

REPORT INFORMATION
  Report Type: 
  Country: None (occurrence: None)
  Receive Date: 20070906
  Receipt Date: 20070830
  Transmission Date: 20080115
  Serious: Yes (Other)
  Sender: FDA-Public Use
  Company Number: CH-AMGEN-US241658

PATIENT
  Sex: Female

DRUGS (2)
  1. ENBREL [Suspect]
     Indication: POLYARTHRITIS
     Dosage: UNKNOWN
  2. METHOTREXATE [Suspect]
     Dosage: UNKNOWN
     Dates: end: 20070101

REACTIONS (2)
  - ARTHRITIS BACTERIAL [None]
  - TOOTH ABSCESS [None]
